FAERS Safety Report 4925260-X (Version None)
Quarter: 2006Q1

REPORT INFORMATION
  Report Type: 
  Country: None (occurrence: None)
  Receive Date: 20060228
  Receipt Date: 20060217
  Transmission Date: 20060701
  Serious: Yes (Hospitalization)
  Sender: FDA-Public Use
  Company Number: US-JNJFOC-20060104536

PATIENT
  Sex: Male
  Weight: 86.18 kg

DRUGS (6)
  1. DURAGESIC-100 [Suspect]
     Route: 062
  2. DURAGESIC-100 [Suspect]
     Route: 062
  3. PERCOCET [Concomitant]
     Route: 048
  4. PERCOCET [Concomitant]
     Indication: BREAKTHROUGH PAIN
     Route: 048
  5. AMBIEN [Concomitant]
     Indication: SLEEP DISORDER THERAPY
     Route: 048
  6. CYMBALTA [Concomitant]
     Indication: DEPRESSION
     Route: 048

REACTIONS (1)
  - PERINEURIAL CYST [None]
